FAERS Safety Report 16247367 (Version 1)
Quarter: 2019Q2

REPORT INFORMATION
  Report Type: Report from Study
  Country: MX (occurrence: MX)
  Receive Date: 20190427
  Receipt Date: 20190427
  Transmission Date: 20190711
  Serious: Yes (Death)
  Sender: FDA-Public Use
  Company Number: MX-UCBSA-2018025689

PATIENT
  Sex: Female
  Weight: 49 kg

DRUGS (7)
  1. ROTIGOTINE [Suspect]
     Active Substance: ROTIGOTINE
     Indication: MOVEMENT DISORDER
  2. ROTIGOTINE [Suspect]
     Active Substance: ROTIGOTINE
     Indication: MEMORY IMPAIRMENT
     Dosage: UNK, ONCE DAILY (QD)
     Route: 062
     Dates: start: 2017
  3. ROTIGOTINE [Suspect]
     Active Substance: ROTIGOTINE
     Indication: OFF LABEL USE
  4. ASPIRINE PROTECT [Concomitant]
     Active Substance: ASPIRIN
     Indication: DISTURBANCE IN ATTENTION
  5. EBIXA [Concomitant]
     Active Substance: MEMANTINE HYDROCHLORIDE
     Indication: DISTURBANCE IN ATTENTION
  6. EBIXA [Concomitant]
     Active Substance: MEMANTINE HYDROCHLORIDE
     Indication: MEMORY IMPAIRMENT
     Dosage: 1 DOSAGE FORM, ONCE DAILY (QD)
  7. ASPIRINE PROTECT [Concomitant]
     Active Substance: ASPIRIN
     Indication: MEMORY IMPAIRMENT
     Dosage: 100 MILLIGRAM, ONCE DAILY (QD)

REACTIONS (3)
  - Depression [Not Recovered/Not Resolved]
  - Off label use [Unknown]
  - Septic shock [Fatal]

NARRATIVE: CASE EVENT DATE: 2017
